FAERS Safety Report 17288279 (Version 1)
Quarter: 2020Q1

REPORT INFORMATION
  Report Type: Other
  Country: ES (occurrence: ES)
  Receive Date: 20200120
  Receipt Date: 20200120
  Transmission Date: 20200409
  Serious: Yes (Hospitalization)
  Sender: FDA-Public Use
  Company Number: ES-DENTSPLY-2020SCDP000002

PATIENT
  Age: 19 Year
  Sex: Female

DRUGS (1)
  1. MEPIVACAINE [Suspect]
     Active Substance: MEPIVACAINE HYDROCHLORIDE
     Indication: PRODUCT USED FOR UNKNOWN INDICATION
     Dosage: UNK
     Dates: start: 20181215, end: 20181215

REACTIONS (3)
  - Eyelid oedema [None]
  - Urticaria [None]
  - Lip oedema [None]

NARRATIVE: CASE EVENT DATE: 20181215
